FAERS Safety Report 17764240 (Version 1)
Quarter: 2020Q2

REPORT INFORMATION
  Report Type: Spontaneous
  Country: US (occurrence: US)
  Receive Date: 20200511
  Receipt Date: 20200511
  Transmission Date: 20200714
  Serious: Yes (Other)
  Sender: FDA-Public Use
  Company Number: US-CIPLA LTD.-2020US03221

PATIENT

DRUGS (13)
  1. LORAZEPAM. [Concomitant]
     Active Substance: LORAZEPAM
     Indication: GENERALISED ANXIETY DISORDER
     Dosage: 0.25 MILLIGRAM, PRN (AS NEEDED)
     Route: 065
  2. CARBOPLATIN. [Concomitant]
     Active Substance: CARBOPLATIN
     Indication: OVARIAN CANCER RECURRENT
     Dosage: UNK
     Route: 065
  3. NIRAPARIB [Concomitant]
     Active Substance: NIRAPARIB
     Indication: OVARIAN CANCER RECURRENT
     Dosage: 300 MILLIGRAM, QD (AT BEDTIME) (MAINTENANCE CHEMOTHERAPY)
     Route: 048
  4. NIRAPARIB [Concomitant]
     Active Substance: NIRAPARIB
     Dosage: 200 MG/DAY (DECREASED DOSE)
     Route: 048
  5. BUSPIRONE [Suspect]
     Active Substance: BUSPIRONE HYDROCHLORIDE
     Indication: GENERALISED ANXIETY DISORDER
  6. NIRAPARIB [Concomitant]
     Active Substance: NIRAPARIB
     Dosage: 100 MILLIGRAM, QOD (EVERY OTHER DAY) (DOSING LOWERED)
     Route: 048
  7. BUSPIRONE [Suspect]
     Active Substance: BUSPIRONE HYDROCHLORIDE
     Indication: MAJOR DEPRESSION
     Dosage: 30 MG/DAY
     Route: 065
  8. NIRAPARIB [Concomitant]
     Active Substance: NIRAPARIB
     Dosage: 100 MG/DAY (DECREASED DOSE)
     Route: 048
  9. ESCITALOPRAM [Suspect]
     Active Substance: ESCITALOPRAM OXALATE
     Indication: MAJOR DEPRESSION
     Dosage: 20 MG/DAY
     Route: 065
  10. ESCITALOPRAM [Suspect]
     Active Substance: ESCITALOPRAM OXALATE
     Indication: GENERALISED ANXIETY DISORDER
  11. PACLITAXEL. [Concomitant]
     Active Substance: PACLITAXEL
     Indication: OVARIAN CANCER RECURRENT
     Dosage: UNK
     Route: 065
  12. LORAZEPAM. [Concomitant]
     Active Substance: LORAZEPAM
     Dosage: 0.25-0.50 MG PER DAY
     Route: 065
  13. LORAZEPAM. [Concomitant]
     Active Substance: LORAZEPAM
     Dosage: 0.25-0.50 MG ONCE A WEEK
     Route: 065

REACTIONS (1)
  - Drug ineffective [Unknown]
